FAERS Safety Report 6199504-3 (Version None)
Quarter: 2009Q2

REPORT INFORMATION
  Report Type: 
  Country: None (occurrence: None)
  Receive Date: 20090522
  Receipt Date: 20090512
  Transmission Date: 20091009
  Serious: Yes (Hospitalization, Other)
  Sender: FDA-Public Use
  Company Number: US-AVENTIS-200817607US

PATIENT
  Sex: Male
  Weight: 100 kg

DRUGS (5)
  1. KETEK [Suspect]
     Indication: BRONCHITIS
     Dosage: DOSE: 1 TAB
     Dates: start: 20060907, end: 20060907
  2. KETEK [Suspect]
     Indication: PNEUMONIA
     Dosage: DOSE: 1 TAB
     Dates: start: 20060907, end: 20060907
  3. PAXIL [Concomitant]
     Dosage: DOSE: UNK
  4. PREDNISONE [Concomitant]
     Dosage: DOSE: UNK
  5. ANTIBIOTICS [Concomitant]

REACTIONS (34)
  - ABDOMINAL DISTENSION [None]
  - ABDOMINAL PAIN UPPER [None]
  - ACUTE HEPATIC FAILURE [None]
  - ACUTE RESPIRATORY FAILURE [None]
  - ALANINE AMINOTRANSFERASE INCREASED [None]
  - ASCITES [None]
  - ASPARTATE AMINOTRANSFERASE INCREASED [None]
  - AZOTAEMIA [None]
  - BLOOD BILIRUBIN INCREASED [None]
  - BLOOD CREATININE INCREASED [None]
  - BLUE TOE SYNDROME [None]
  - CARDIAC FAILURE CONGESTIVE [None]
  - CARDIOMYOPATHY [None]
  - CHROMATURIA [None]
  - COAGULOPATHY [None]
  - DIARRHOEA [None]
  - EJECTION FRACTION DECREASED [None]
  - ESCHERICHIA URINARY TRACT INFECTION [None]
  - HAEMATEMESIS [None]
  - INTERNATIONAL NORMALISED RATIO INCREASED [None]
  - JAUNDICE [None]
  - KLEBSIELLA INFECTION [None]
  - MENTAL STATUS CHANGES [None]
  - NAUSEA [None]
  - NEUTROPHIL COUNT INCREASED [None]
  - OEDEMA PERIPHERAL [None]
  - PLATELET COUNT DECREASED [None]
  - PLEURAL EFFUSION [None]
  - RENAL FAILURE [None]
  - SPIDER NAEVUS [None]
  - TACHYCARDIA [None]
  - TACHYPNOEA [None]
  - URINARY TRACT INFECTION [None]
  - VOMITING [None]
